FAERS Safety Report 4331130-0 (Version None)
Quarter: 2004Q1

REPORT INFORMATION
  Report Type: 
  Country: None (occurrence: None)
  Receive Date: 20040331
  Receipt Date: 20040324
  Transmission Date: 20041129
  Serious: Yes (Hospitalization)
  Sender: FDA-Public Use
  Company Number: US-SHR-03-019312

PATIENT
  Age: 49 Year
  Sex: Female

DRUGS (4)
  1. BETASERON [Suspect]
     Indication: MULTIPLE SCLEROSIS
     Dosage: 8 MIU, EVERY 2D, SUBCUTANEOUS
     Route: 058
     Dates: start: 20031028
  2. CARISOPRODOL [Concomitant]
  3. MECLIZINE [Concomitant]
  4. CHLORDIAZEPOXIDE W/AMITRIPTYLINE (AMITRIPTYLINE, CHLORDIAZEPOXIDE) [Concomitant]

REACTIONS (2)
  - DIZZINESS [None]
  - SPEECH DISORDER [None]
